FAERS Safety Report 6689391-9 (Version None)
Quarter: 2010Q2

REPORT INFORMATION
  Report Type: 
  Country: None (occurrence: None)
  Receive Date: 20100419
  Receipt Date: 20100419
  Transmission Date: 20101027
  Serious: Yes (Life-Threatening, Hospitalization, Disabling)
  Sender: FDA-Public Use
  Company Number: None

PATIENT
  Age: 39 Year
  Sex: Male
  Weight: 81.6475 kg

DRUGS (2)
  1. ACCUTANE [Suspect]
     Indication: ACNE
     Dosage: 2 PER DAY
     Dates: start: 19850101, end: 19850829
  2. ACCUTANE [Concomitant]

REACTIONS (18)
  - ACTIVITIES OF DAILY LIVING IMPAIRED [None]
  - ARTERIAL DISORDER [None]
  - ASPHYXIA [None]
  - BURNING SENSATION [None]
  - CEREBRAL DISORDER [None]
  - HEAD INJURY [None]
  - HOMELESS [None]
  - IMPAIRED WORK ABILITY [None]
  - INTENTIONAL SELF-INJURY [None]
  - MIGRAINE [None]
  - NERVE INJURY [None]
  - NIGHTMARE [None]
  - PAIN [None]
  - PRODUCT QUALITY ISSUE [None]
  - SKIN LACERATION [None]
  - SUICIDAL BEHAVIOUR [None]
  - SUICIDAL IDEATION [None]
  - VEIN DISORDER [None]
